FAERS Safety Report 9116499 (Version 1)
Quarter: 2013Q1

REPORT INFORMATION
  Report Type: Spontaneous
  Country: JP (occurrence: JP)
  Receive Date: 20130225
  Receipt Date: 20130225
  Transmission Date: 20140127
  Serious: Yes (Other)
  Sender: FDA-Public Use
  Company Number: PHHY2013JP017543

PATIENT
  Age: 29 Year
  Sex: Male

DRUGS (1)
  1. OLANZAPINE [Suspect]
     Indication: INTERMITTENT EXPLOSIVE DISORDER
     Dosage: 5 MG, UNK

REACTIONS (2)
  - Anger [Recovered/Resolved]
  - Somnolence [Recovering/Resolving]
